FAERS Safety Report 12525216 (Version 1)
Quarter: 2016Q3

REPORT INFORMATION
  Report Type: Spontaneous
  Country: FR (occurrence: FR)
  Receive Date: 20160704
  Receipt Date: 20160704
  Transmission Date: 20161109
  Serious: Yes (Other)
  Sender: FDA-Public Use
  Company Number: FR-UCBSA-2016024665

PATIENT
  Age: 72 Year
  Sex: Male

DRUGS (3)
  1. EDEX [Suspect]
     Active Substance: ALPROSTADIL
     Indication: ERECTILE DYSFUNCTION
     Dosage: 0.25 ML, UNK
     Route: 017
  2. EDEX [Suspect]
     Active Substance: ALPROSTADIL
     Dosage: 0.5 ML, UNK
     Route: 017
  3. EDEX [Suspect]
     Active Substance: ALPROSTADIL
     Dosage: 0.75 ML, UNK
     Route: 017
     Dates: start: 20150110, end: 20150110

REACTIONS (1)
  - Cerebrovascular accident [Recovered/Resolved]

NARRATIVE: CASE EVENT DATE: 20150110
